FAERS Safety Report 6168164-X (Version None)
Quarter: 2009Q2

REPORT INFORMATION
  Report Type: 
  Country: None (occurrence: None)
  Receive Date: 20090423
  Receipt Date: 20090423
  Transmission Date: 20091009
  Serious: Yes (Life-Threatening, Hospitalization)
  Sender: FDA-Public Use
  Company Number: None

PATIENT
  Age: 53 Year
  Sex: Female
  Weight: 72.5755 kg

DRUGS (1)
  1. CLONIDINE [Suspect]
     Indication: HYPERTENSION
     Dosage: ONE A DAY PO
     Route: 048
     Dates: start: 20061115, end: 20070211

REACTIONS (2)
  - BRAIN OEDEMA [None]
  - RUPTURED CEREBRAL ANEURYSM [None]
